FAERS Safety Report 12204778 (Version 1)
Quarter: 2016Q1

REPORT INFORMATION
  Report Type: Spontaneous
  Country: GB (occurrence: GB)
  Receive Date: 20160323
  Receipt Date: 20160323
  Transmission Date: 20160526
  Serious: Yes (Death, Other)
  Sender: FDA-Public Use
  Company Number: GB-ACTAVIS-2016-05455

PATIENT
  Age: 97 Year
  Sex: Female

DRUGS (1)
  1. GABAPENTIN (UNKNOWN) [Suspect]
     Active Substance: GABAPENTIN
     Indication: PRODUCT USED FOR UNKNOWN INDICATION
     Dosage: 300 MG, UNKNOWN
     Route: 065

REACTIONS (3)
  - Coma [Fatal]
  - Wrong drug administered [Fatal]
  - Death [Fatal]
